FAERS Safety Report 8130502-6 (Version None)
Quarter: 2012Q1

REPORT INFORMATION
  Report Type: 
  Country: None (occurrence: None)
  Receive Date: 20120210
  Receipt Date: 20120131
  Transmission Date: 20120608
  Serious: Yes (Other)
  Sender: FDA-Public Use
  Company Number: CA-ASTRAZENECA-2011SE01272

PATIENT
  Age: 889 Month
  Sex: Male

DRUGS (6)
  1. ZOLADEX [Suspect]
     Route: 058
     Dates: start: 20111104
  2. METOCLOPRAMIDE [Concomitant]
  3. LEVOTHYROXINE SODIUM [Concomitant]
     Indication: THYROID DISORDER
  4. ZOLADEX [Suspect]
     Indication: PROSTATE CANCER
     Route: 058
     Dates: start: 20101105
  5. FLOMAX [Concomitant]
     Indication: MICTURITION DISORDER
  6. CASODEX [Suspect]
     Indication: PROSTATE CANCER
     Route: 048
     Dates: start: 20101001

REACTIONS (3)
  - PRURITUS [None]
  - METASTASES TO CENTRAL NERVOUS SYSTEM [None]
  - METASTASES TO BONE [None]
